FAERS Safety Report 15158359 (Version 2)
Quarter: 2018Q3

REPORT INFORMATION
  Report Type: Spontaneous
  Country: IN (occurrence: IN)
  Receive Date: 20180718
  Receipt Date: 20180724
  Transmission Date: 20181010
  Serious: Yes (Death, Life-Threatening, Other)
  Sender: FDA-Public Use
  Company Number: IN-BAUSCH-BL-2018-019338

PATIENT
  Age: 45 Year
  Sex: Male

DRUGS (1)
  1. OFLOXACIN. [Suspect]
     Active Substance: OFLOXACIN
     Indication: PRODUCT USED FOR UNKNOWN INDICATION
     Route: 065

REACTIONS (1)
  - Toxic epidermal necrolysis [Fatal]
